FAERS Safety Report 11682337 (Version 1)
Quarter: 2015Q4

REPORT INFORMATION
  Report Type: Spontaneous
  Country: US (occurrence: US)
  Receive Date: 20151029
  Receipt Date: 20151029
  Transmission Date: 20160304
  Serious: No
  Sender: FDA-Public Use
  Company Number: US-TEVA-570506USA

PATIENT
  Sex: Female

DRUGS (10)
  1. CALCIUM [Concomitant]
     Active Substance: CALCIUM
  2. ATORVASTATIN [Concomitant]
     Active Substance: ATORVASTATIN
  3. DULOXETINE. [Concomitant]
     Active Substance: DULOXETINE
  4. COPAXONE [Suspect]
     Active Substance: GLATIRAMER ACETATE
     Indication: MULTIPLE SCLEROSIS
     Dosage: UNKNOWN FORM STRENGTH
     Route: 065
  5. MAGNESIUM [Concomitant]
     Active Substance: MAGNESIUM
  6. METFORMIN [Concomitant]
     Active Substance: METFORMIN HYDROCHLORIDE
  7. GABAPENTIN. [Concomitant]
     Active Substance: GABAPENTIN
  8. VITAMIN D [Concomitant]
     Active Substance: CHOLECALCIFEROL
  9. VITAMIN B12 [Concomitant]
     Active Substance: CYANOCOBALAMIN
  10. ENDOCET [Concomitant]
     Active Substance: ACETAMINOPHEN\OXYCODONE HYDROCHLORIDE

REACTIONS (6)
  - Dyspnoea [Recovered/Resolved with Sequelae]
  - Tremor [Recovered/Resolved with Sequelae]
  - Swelling face [Recovered/Resolved with Sequelae]
  - Vomiting [Recovered/Resolved with Sequelae]
  - Palpitations [Recovered/Resolved with Sequelae]
  - Adverse drug reaction [Recovered/Resolved with Sequelae]

NARRATIVE: CASE EVENT DATE: 20150406
